FAERS Safety Report 15627263 (Version 3)
Quarter: 2018Q4

REPORT INFORMATION
  Report Type: Spontaneous
  Country: SE (occurrence: SE)
  Receive Date: 20181116
  Receipt Date: 20181221
  Transmission Date: 20190205
  Serious: Yes (Life-Threatening, Hospitalization, Other)
  Sender: FDA-Public Use
  Company Number: SE-PFIZER INC-2011SE74280

PATIENT
  Age: 45 Year
  Sex: Female

DRUGS (3)
  1. MERONEM [Suspect]
     Active Substance: MEROPENEM
     Dosage: 1 G, UNK
     Route: 042
     Dates: start: 20111104, end: 20111104
  2. CITALOPRAM [Concomitant]
     Active Substance: CITALOPRAM HYDROBROMIDE
     Dosage: UNK
  3. VALTREX [Concomitant]
     Active Substance: VALACYCLOVIR HYDROCHLORIDE
     Dosage: UNK

REACTIONS (7)
  - Hypotension [Unknown]
  - Pruritus [Unknown]
  - Pyrexia [Unknown]
  - Loss of consciousness [Unknown]
  - Anaphylactic shock [Recovered/Resolved]
  - Respiratory distress [Unknown]
  - Chills [Unknown]

NARRATIVE: CASE EVENT DATE: 20111104
